FAERS Safety Report 9386051 (Version 1)
Quarter: 2013Q3

REPORT INFORMATION
  Report Type: Spontaneous
  Country: BR (occurrence: BR)
  Receive Date: 20130705
  Receipt Date: 20130705
  Transmission Date: 20140515
  Serious: Yes (Other)
  Sender: FDA-Public Use
  Company Number: BR-ELI_LILLY_AND_COMPANY-BR201306009052

PATIENT
  Age: 59 Year
  Sex: Male
  Weight: 108 kg

DRUGS (9)
  1. HUMALOG [Suspect]
     Dosage: UNK, UNKNOWN
     Route: 065
  2. HUMALOG MIX 50 [Suspect]
     Indication: DIABETES MELLITUS
     Dosage: 10 IU, TID
     Route: 058
     Dates: start: 20130621, end: 20130622
  3. DIOVAN [Concomitant]
     Dosage: 320 DF, UNKNOWN
     Route: 065
  4. ALDACTONE                          /00006201/ [Concomitant]
     Dosage: 25 DF, UNKNOWN
     Route: 065
  5. CARVEDILOL [Concomitant]
     Dosage: 25 DF, UNKNOWN
     Route: 065
  6. AAS [Concomitant]
     Dosage: UNK, UNKNOWN
     Route: 065
  7. METFORMINA                         /00082701/ [Concomitant]
     Dosage: 850 MG, UNKNOWN
     Route: 065
  8. CRESTOR [Concomitant]
     Dosage: UNK, UNKNOWN
     Route: 065
  9. LANTUS [Concomitant]
     Dosage: UNK, UNKNOWN
     Route: 065

REACTIONS (11)
  - Pulmonary oedema [Unknown]
  - Cardiac failure [Unknown]
  - Blood glucose increased [Unknown]
  - Pyrexia [Recovered/Resolved]
  - Chills [Unknown]
  - Diarrhoea [Recovered/Resolved]
  - Rash [Recovered/Resolved]
  - Blood test abnormal [Unknown]
  - Drug hypersensitivity [Unknown]
  - Intentional drug misuse [Unknown]
  - Wrong drug administered [Unknown]
